FAERS Safety Report 4734875-3 (Version None)
Quarter: 2005Q3

REPORT INFORMATION
  Report Type: 
  Country: None (occurrence: None)
  Receive Date: 20050804
  Receipt Date: 20050411
  Transmission Date: 20060218
  Serious: Yes (Hospitalization, Other)
  Sender: FDA-Public Use
  Company Number: PHNU2005DE01622

PATIENT
  Age: 73 Year
  Sex: Female

DRUGS (7)
  1. LOCOL [Suspect]
     Indication: HYPERLIPIDAEMIA
     Dates: start: 19960101
  2. VERAHEXAL [Concomitant]
  3. NITRO-SPRAY [Concomitant]
  4. SIMVASTATIN [Suspect]
  5. LIPIDIL [Concomitant]
  6. EZETROL [Concomitant]
  7. CALCIUM WITH VITAMIN D [Concomitant]

REACTIONS (8)
  - CARDIAC OPERATION [None]
  - DRUG INEFFECTIVE [None]
  - ERYTHEMA [None]
  - OEDEMA PERIPHERAL [None]
  - PROCEDURAL SITE REACTION [None]
  - SCAR [None]
  - SKIN NECROSIS [None]
  - VASCULITIS [None]
